FAERS Safety Report 18403269 (Version 2)
Quarter: 2023Q1

REPORT INFORMATION
  Report Type: Other
  Country: GB (occurrence: None)
  Receive Date: 20201019
  Receipt Date: 20230328
  Transmission Date: 20230417
  Serious: Yes (Hospitalization, Other)
  Sender: FDA-Public Use
  Company Number: GB-ROCHE-2692908

PATIENT
  Sex: Female

DRUGS (5)
  1. TOCILIZUMAB [Suspect]
     Active Substance: TOCILIZUMAB
     Indication: Rheumatoid arthritis
     Route: 058
     Dates: start: 2015
  2. SULFASALAZINE [Concomitant]
     Active Substance: SULFASALAZINE
  3. ACETAMINOPHEN [Concomitant]
     Active Substance: ACETAMINOPHEN
  4. MORPHINE SULFATE [Concomitant]
     Active Substance: MORPHINE SULFATE
  5. THYROXINE [Concomitant]
     Active Substance: LEVOTHYROXINE

REACTIONS (6)
  - Malaise [Unknown]
  - Nephrolithiasis [Unknown]
  - Sepsis [Unknown]
  - Chronic obstructive pulmonary disease [Unknown]
  - Diarrhoea [Unknown]
  - Lower respiratory tract infection [Unknown]
